FAERS Safety Report 8818765 (Version 1)
Quarter: 2012Q4

REPORT INFORMATION
  Report Type: Spontaneous
  Country: US (occurrence: None)
  Receive Date: 20121002
  Receipt Date: 20121002
  Transmission Date: 20130627
  Serious: Yes (Other)
  Sender: FDA-Public Use
  Company Number: IMP_05999_2012

PATIENT
  Age: 13 Year
  Sex: Female

DRUGS (2)
  1. BUPROPION [Suspect]
     Indication: PRODUCT USED FOR UNKNOWN INDICATION
     Dosage: DF [not the prescribed amount]
     Route: 048
  2. DIPHENHYDRAMINE [Suspect]
     Indication: PRODUCT USED FOR UNKNOWN INDICATION
     Dosage: DF [not the prescribed amount]

REACTIONS (4)
  - Agitation [None]
  - Hyperthermia [None]
  - Toxicity to various agents [None]
  - Incorrect dose administered [None]
